FAERS Safety Report 12555578 (Version 1)
Quarter: 2016Q3

REPORT INFORMATION
  Report Type: Spontaneous
  Country: US (occurrence: None)
  Receive Date: 20160713
  Receipt Date: 20160713
  Transmission Date: 20161109
  Serious: Yes (Other)
  Sender: FDA-Public Use
  Company Number: None

PATIENT
  Age: 72 Year
  Sex: Female
  Weight: 58.97 kg

DRUGS (4)
  1. LUMINGAN [Concomitant]
  2. VITAMIN D [Concomitant]
     Active Substance: CHOLECALCIFEROL
  3. LACTULOSE. [Suspect]
     Active Substance: LACTULOSE
     Indication: LABORATORY TEST
     Dosage: 1 PACKET ONCE TAKEN BY MOUTH
     Route: 048
     Dates: start: 20160706, end: 20160706
  4. SIBO, 10 G [Suspect]
     Active Substance: DEVICE

REACTIONS (3)
  - Diarrhoea [None]
  - Dehydration [None]
  - Product label issue [None]

NARRATIVE: CASE EVENT DATE: 20160706
